FAERS Safety Report 7129517-6 (Version None)
Quarter: 2010Q4

REPORT INFORMATION
  Report Type: 
  Country: None (occurrence: None)
  Receive Date: 20101130
  Receipt Date: 20101116
  Transmission Date: 20110411
  Serious: Yes (Hospitalization)
  Sender: FDA-Public Use
  Company Number: DE-ASTRAZENECA-2009PK00739

PATIENT
  Age: 76 Year
  Sex: Female

DRUGS (8)
  1. RAMIPRIL [Interacting]
     Indication: HYPERTENSION
     Route: 048
     Dates: start: 20060601
  2. TORSEMIDE [Suspect]
     Indication: HYPERTENSION
     Route: 048
     Dates: start: 20080901, end: 20080908
  3. TORSEMIDE [Suspect]
     Route: 048
     Dates: start: 20100916
  4. TIAPRIDEX [Concomitant]
     Indication: TARDIVE DYSKINESIA
     Dosage: 1.5-1.5-1, THREE TIMES A DAY
     Route: 048
     Dates: start: 20060601
  5. TRIMINEURIN [Concomitant]
     Indication: SLEEP DISORDER THERAPY
     Route: 048
     Dates: start: 20060601, end: 20080908
  6. OMEP [Concomitant]
     Indication: MALLORY-WEISS SYNDROME
     Route: 048
     Dates: start: 20080810
  7. ASPIRIN [Concomitant]
     Indication: CARDIOVASCULAR EVENT PROPHYLAXIS
     Route: 048
     Dates: start: 20060601
  8. BISOPROLOL [Concomitant]
     Indication: HYPERTENSION
     Route: 048
     Dates: start: 20060601

REACTIONS (2)
  - DEHYDRATION [None]
  - DRUG INTERACTION [None]
